FAERS Safety Report 13144521 (Version 1)
Quarter: 2017Q1

REPORT INFORMATION
  Report Type: Spontaneous
  Country: AU (occurrence: AU)
  Receive Date: 20170124
  Receipt Date: 20170124
  Transmission Date: 20170428
  Serious: Yes (Life-Threatening)
  Sender: FDA-Public Use
  Company Number: AU-APOTEX-2017AP005975

PATIENT
  Age: 27 Year
  Sex: Male

DRUGS (5)
  1. CHLORPROMAZINE. [Suspect]
     Active Substance: CHLORPROMAZINE
     Indication: AGITATION
     Dosage: 100 MG, UNK
     Route: 065
  2. CLONAZEPAM. [Suspect]
     Active Substance: CLONAZEPAM
     Indication: AGITATION
     Dosage: 2 MG, UNK
     Route: 048
  3. RISPERIDONE. [Suspect]
     Active Substance: RISPERIDONE
     Indication: AGITATION
     Dosage: 1 MG, BID
     Route: 048
  4. HALOPERIDOL. [Suspect]
     Active Substance: HALOPERIDOL
     Indication: AGITATION
     Dosage: 10 MG, UNK
     Route: 048
  5. RISPERIDONE. [Suspect]
     Active Substance: RISPERIDONE
     Dosage: 3 MG, Q.H.S. (AT NOCTE)
     Route: 065

REACTIONS (3)
  - Dystonia [Recovered/Resolved]
  - Spasmodic dysphonia [Recovered/Resolved]
  - Anxiety [Recovered/Resolved]
